FAERS Safety Report 20475468 (Version 4)
Quarter: 2023Q4

REPORT INFORMATION
  Report Type: Spontaneous
  Country: US (occurrence: US)
  Receive Date: 20220215
  Receipt Date: 20231201
  Transmission Date: 20240110
  Serious: Yes (Other)
  Sender: FDA-Public Use
  Company Number: US-PFIZER INC-202200197736

PATIENT
  Age: 63 Year
  Sex: Female
  Weight: 83.9 kg

DRUGS (2)
  1. IBRANCE [Suspect]
     Active Substance: PALBOCICLIB
     Indication: Breast cancer metastatic
     Dosage: 100 MG, CYCLIC (TAKE 1 CAPSULE DAILY ON DAYS 1 THROUGH 21 OF A 28 DAY CYCLE)
     Dates: start: 20210811
  2. IBRANCE [Suspect]
     Active Substance: PALBOCICLIB
     Dosage: UNK, DAILY (ORAL/DAILY X 21 DAYS)
     Route: 048
     Dates: start: 2021, end: 2023

REACTIONS (10)
  - White blood cell count decreased [Unknown]
  - COVID-19 [Unknown]
  - Diarrhoea [Unknown]
  - Constipation [Unknown]
  - Headache [Unknown]
  - Asthenia [Unknown]
  - Fatigue [Unknown]
  - Malaise [Unknown]
  - Neoplasm progression [Unknown]
  - Product dose omission in error [Unknown]

NARRATIVE: CASE EVENT DATE: 20220101
